FAERS Safety Report 5509995-6 (Version None)
Quarter: 2007Q4

REPORT INFORMATION
  Report Type: 
  Country: None (occurrence: None)
  Receive Date: 20071107
  Receipt Date: 20071107
  Transmission Date: 20080405
  Serious: Yes (Other)
  Sender: FDA-Public Use
  Company Number: None

PATIENT
  Age: 29 Year
  Sex: Male
  Weight: 88.4514 kg

DRUGS (1)
  1. CHANTIX [Suspect]
     Indication: SMOKING CESSATION THERAPY
     Dosage: 1MG 2 TIMES A DAY PO
     Route: 048
     Dates: start: 20071024, end: 20071106

REACTIONS (4)
  - ANGER [None]
  - CRYING [None]
  - DEPRESSION [None]
  - HYPERSOMNIA [None]
